FAERS Safety Report 11246926 (Version 1)
Quarter: 2015Q3

REPORT INFORMATION
  Report Type: Spontaneous
  Country: TN (occurrence: TN)
  Receive Date: 20150708
  Receipt Date: 20150708
  Transmission Date: 20151125
  Serious: Yes (Death)
  Sender: FDA-Public Use
  Company Number: TN-SUN PHARMACEUTICAL INDUSTRIES LTD-2015RR-099951

PATIENT

DRUGS (5)
  1. VANCOMYCIN [Suspect]
     Active Substance: VANCOMYCIN
     Indication: EPIDERMOLYSIS BULLOSA
     Dosage: UNK
     Route: 065
  2. COTRIMOXAZOLE [Suspect]
     Active Substance: SULFAMETHOXAZOLE\TRIMETHOPRIM
     Indication: EPIDERMOLYSIS BULLOSA
     Dosage: UNK
     Route: 065
  3. GENTAMICIN. [Suspect]
     Active Substance: GENTAMICIN
     Indication: EPIDERMOLYSIS BULLOSA
     Dosage: UNK
     Route: 065
  4. CEFOTAXIME [Suspect]
     Active Substance: CEFOTAXIME SODIUM
     Indication: EPIDERMOLYSIS BULLOSA
     Dosage: UNK
     Route: 065
  5. IMIPENEM AND CILASTATIN [Suspect]
     Active Substance: CILASTATIN SODIUM\IMIPENEM
     Indication: EPIDERMOLYSIS BULLOSA
     Dosage: UNK
     Route: 065

REACTIONS (2)
  - Pseudomonas infection [Fatal]
  - Candida infection [Fatal]
